FAERS Safety Report 6589824-2 (Version None)
Quarter: 2010Q1

REPORT INFORMATION
  Report Type: 
  Country: None (occurrence: None)
  Receive Date: 20100219
  Receipt Date: 20100202
  Transmission Date: 20100710
  Serious: No
  Sender: FDA-Public Use
  Company Number: US-JNJFOC-20100201906

PATIENT
  Sex: Female
  Weight: 72.58 kg

DRUGS (7)
  1. FENTANYL-100 [Suspect]
     Indication: PAIN
  2. OXYCODONE HCL [Concomitant]
     Indication: BREAKTHROUGH PAIN
     Dosage: 25/325 MG
     Route: 048
  3. XALATAN [Concomitant]
     Indication: GLAUCOMA
     Route: 047
  4. EFFEXOR XR [Concomitant]
     Indication: DEPRESSION
     Dosage: 225 CAPSULE 75 MG 3 CAPSULES
     Route: 048
  5. TRIAMTERENE AND HYDROCHLOROTHIAZIDE [Concomitant]
     Indication: HYPERTENSION
     Dosage: 37.5 MG/25 MG
     Route: 048
  6. PREDNISONE [Concomitant]
     Indication: PAIN
     Route: 048
  7. PREDNISONE [Concomitant]
     Indication: MUSCULOSKELETAL STIFFNESS
     Route: 048

REACTIONS (2)
  - MUSCLE SPASMS [None]
  - WRONG TECHNIQUE IN DRUG USAGE PROCESS [None]
